FAERS Safety Report 9943154 (Version 1)
Quarter: 2014Q1

REPORT INFORMATION
  Report Type: Spontaneous
  Country: US (occurrence: US)
  Receive Date: 20140303
  Receipt Date: 20140303
  Transmission Date: 20141002
  Serious: Yes (Death, Hospitalization)
  Sender: FDA-Public Use
  Company Number: US-GLAXOSMITHKLINE-A1062327A

PATIENT
  Age: 87 Year
  Sex: Male

DRUGS (3)
  1. ADVAIR [Suspect]
     Indication: PULMONARY FIBROSIS
     Dosage: 1PUFF PER DAY
     Route: 055
  2. NAMENDA [Concomitant]
  3. ARICEPT [Concomitant]

REACTIONS (3)
  - Death [Fatal]
  - Pulmonary fibrosis [Unknown]
  - Dyspnoea [Unknown]
